FAERS Safety Report 16749293 (Version 1)
Quarter: 2019Q3

REPORT INFORMATION
  Report Type: Spontaneous
  Country: US (occurrence: US)
  Receive Date: 20190828
  Receipt Date: 20190828
  Transmission Date: 20191005
  Serious: Yes (Other)
  Sender: FDA-Public Use
  Company Number: US-ASSERTIO THERAPEUTICS, INC.-US-2019DEP000892

PATIENT
  Sex: Female

DRUGS (1)
  1. ZIPSOR [Suspect]
     Active Substance: DICLOFENAC POTASSIUM
     Indication: SACROILIITIS
     Dosage: 25 MG, QID
     Route: 048

REACTIONS (1)
  - Medical procedure [Unknown]
